FAERS Safety Report 24852856 (Version 1)
Quarter: 2025Q1

REPORT INFORMATION
  Report Type: Spontaneous
  Country: US (occurrence: US)
  Receive Date: 20250116
  Receipt Date: 20250116
  Transmission Date: 20250408
  Serious: No
  Sender: ABBVIE
  Company Number: US-ABBVIE-6088624

PATIENT
  Age: 58 Year
  Sex: Female

DRUGS (4)
  1. RINVOQ [Suspect]
     Active Substance: UPADACITINIB
     Indication: Crohn^s disease
     Route: 048
     Dates: start: 202402
  2. DOXYCYCLINE [Suspect]
     Active Substance: DOXYCYCLINE
     Indication: Product used for unknown indication
     Route: 065
     Dates: end: 202412
  3. AMOXICILLIN [Suspect]
     Active Substance: AMOXICILLIN
     Indication: Product used for unknown indication
     Route: 065
     Dates: end: 202412
  4. MINOCYCLINE [Suspect]
     Active Substance: MINOCYCLINE HYDROCHLORIDE
     Indication: Product used for unknown indication
     Route: 065
     Dates: end: 202412

REACTIONS (17)
  - Toxicity to various agents [Not Recovered/Not Resolved]
  - Pseudoporphyria [Unknown]
  - Heart rate increased [Unknown]
  - Myalgia [Unknown]
  - Blood cholesterol increased [Unknown]
  - Cough [Not Recovered/Not Resolved]
  - Arthralgia [Unknown]
  - Blood urea increased [Unknown]
  - Blood creatinine increased [Unknown]
  - Heart rate increased [Not Recovered/Not Resolved]
  - Urinary hesitation [Unknown]
  - Haematocrit decreased [Unknown]
  - Staphylococcal infection [Unknown]
  - Fatigue [Unknown]
  - Nausea [Unknown]
  - Anxiety [Unknown]
  - Pain [Unknown]

NARRATIVE: CASE EVENT DATE: 20240201
